FAERS Safety Report 9515373 (Version 1)
Quarter: 2013Q1

REPORT INFORMATION
  Report Type: Spontaneous
  Country: US (occurrence: None)
  Receive Date: 20130305
  Receipt Date: 20130305
  Transmission Date: 20140127
  Serious: Yes (Hospitalization)
  Sender: FDA-Public Use
  Company Number: 163-21880-12043008

PATIENT
  Age: 63 Year
  Sex: Female

DRUGS (6)
  1. REVLIMID [Suspect]
     Indication: CHRONIC MYELOID LEUKAEMIA
     Dosage: 5 MG, 1 IN 1 D, PO
     Route: 048
     Dates: start: 20120412
  2. GAMUNEX (IMMUNOGLOBULIN) (UNKNOWN) [Concomitant]
  3. PREDNISONE (PREDNISONE) (UNKNOWN) [Concomitant]
  4. PROTONIX (UNKNOWN) [Concomitant]
  5. RITUXAN (RITUXIMAB) (UNKNOWN) [Concomitant]
  6. SINGULAIR (MONTELUKAST SODIUM) (UNKNOWN) [Concomitant]

REACTIONS (1)
  - Pneumonia [None]
